FAERS Safety Report 22141188 (Version 2)
Quarter: 2023Q2

REPORT INFORMATION
  Report Type: Spontaneous
  Country: US (occurrence: US)
  Receive Date: 20230327
  Receipt Date: 20230425
  Transmission Date: 20230721
  Serious: No
  Sender: FDA-Public Use
  Company Number: US-SA-SAC20230324000948

PATIENT
  Sex: Female
  Weight: 27.2 kg

DRUGS (1)
  1. DUPIXENT [Suspect]
     Active Substance: DUPILUMAB
     Indication: Dermatitis atopic
     Dosage: 300 MG, Q4W
     Route: 058

REACTIONS (6)
  - Hypersensitivity [Unknown]
  - Headache [Unknown]
  - Feeling hot [Unknown]
  - Periorbital swelling [Unknown]
  - Erythema [Unknown]
  - Rash erythematous [Unknown]
